FAERS Safety Report 20605998 (Version 3)
Quarter: 2022Q2

REPORT INFORMATION
  Report Type: Spontaneous
  Country: US (occurrence: US)
  Receive Date: 20220317
  Receipt Date: 20220505
  Transmission Date: 20220721
  Serious: Yes (Life-Threatening, Hospitalization, Other)
  Sender: FDA-Public Use
  Company Number: US-SUN PHARMACEUTICAL INDUSTRIES LTD-2022R1-330276

PATIENT
  Age: 17 Year
  Sex: Female

DRUGS (1)
  1. DEPAKOTE [Suspect]
     Active Substance: DIVALPROEX SODIUM
     Indication: Bipolar disorder
     Dosage: UNK
     Route: 048

REACTIONS (7)
  - Toxicity to various agents [Unknown]
  - Hypotension [Recovered/Resolved]
  - Metabolic disorder [Recovered/Resolved]
  - Drug level increased [Recovered/Resolved]
  - Pancreatitis necrotising [Recovered/Resolved]
  - Pancytopenia [Recovered/Resolved]
  - Loss of consciousness [Recovered/Resolved]
